FAERS Safety Report 5693018-2 (Version None)
Quarter: 2008Q2

REPORT INFORMATION
  Report Type: 
  Country: None (occurrence: None)
  Receive Date: 20080402
  Receipt Date: 20080402
  Transmission Date: 20081010
  Serious: Yes (Hospitalization)
  Sender: FDA-Public Use
  Company Number: None

PATIENT
  Age: 28 Year
  Sex: Female
  Weight: 51.7101 kg

DRUGS (2)
  1. LEXAPRO [Suspect]
     Indication: BLOOD PRESSURE
     Dosage: 200 BID PO
     Route: 048
     Dates: start: 19960129, end: 19980224
  2. LEXAPRO [Suspect]
     Indication: BLOOD PRESSURE
     Dosage: 200 BID PO
     Route: 048
     Dates: start: 19950328, end: 20010129

REACTIONS (3)
  - CHEST PAIN [None]
  - DYSPNOEA [None]
  - NAUSEA [None]
